FAERS Safety Report 5417918-3 (Version None)
Quarter: 2007Q3

REPORT INFORMATION
  Report Type: 
  Country: None (occurrence: None)
  Receive Date: 20070815
  Receipt Date: 20070730
  Transmission Date: 20080115
  Serious: Yes (Death)
  Sender: FDA-Public Use
  Company Number: S07-AUS-03427-01

PATIENT
  Age: 56 Hour
  Sex: Male

DRUGS (3)
  1. CITALOPRAM HYDROBROMIDE [Suspect]
  2. CITALOPRAM HYDROBROMIDE [Suspect]
  3. ALCOHOL [Suspect]

REACTIONS (2)
  - ALCOHOL POISONING [None]
  - OVERDOSE [None]
